FAERS Safety Report 8292036-8 (Version None)
Quarter: 2012Q2

REPORT INFORMATION
  Report Type: 
  Country: None (occurrence: None)
  Receive Date: 20120412
  Receipt Date: 20120403
  Transmission Date: 20120825
  Serious: Yes (Other)
  Sender: FDA-Public Use
  Company Number: 2012SP017800

PATIENT
  Age: 38 Year
  Sex: Male
  Weight: 129.5 kg

DRUGS (3)
  1. FLUOXETINE [Concomitant]
  2. MIRTAZAPINE [Suspect]
     Indication: DEPRESSED MOOD
     Dosage: 15 MG; 30 MG; 15 MG
     Dates: start: 20120104, end: 20120117
  3. MIRTAZAPINE [Suspect]
     Indication: DEPRESSED MOOD
     Dosage: 15 MG; 30 MG; 15 MG
     Dates: start: 20120117

REACTIONS (3)
  - CONFUSIONAL STATE [None]
  - PARANOIA [None]
  - IRRITABILITY [None]
